FAERS Safety Report 4869891-4 (Version None)
Quarter: 2005Q4

REPORT INFORMATION
  Report Type: 
  Country: None (occurrence: None)
  Receive Date: 20051230
  Receipt Date: 20051017
  Transmission Date: 20060501
  Serious: Yes (Hospitalization, Disabling, Other)
  Sender: FDA-Public Use
  Company Number: US-MERCK-0510USA07665

PATIENT
  Age: 74 Year
  Sex: Male
  Weight: 109 kg

DRUGS (8)
  1. VIOXX [Suspect]
     Indication: OSTEOARTHRITIS
     Route: 048
     Dates: start: 20000728, end: 20040930
  2. TRICOR [Concomitant]
     Route: 065
  3. METHADONE HCL [Concomitant]
     Route: 065
  4. CELEBREX [Concomitant]
     Route: 065
  5. OXYCODONE [Concomitant]
     Route: 065
  6. IBUPROFEN [Concomitant]
     Route: 065
  7. COLCHICINE [Concomitant]
     Route: 065
  8. VIOXX [Suspect]
     Indication: PAIN
     Route: 048
     Dates: start: 20000728, end: 20040930

REACTIONS (23)
  - CEREBROVASCULAR ACCIDENT [None]
  - CHEST PAIN [None]
  - CHRONIC FATIGUE SYNDROME [None]
  - DEEP VEIN THROMBOSIS [None]
  - DEHYDRATION [None]
  - DEPRESSION [None]
  - DISTURBANCE IN ATTENTION [None]
  - DYSPNOEA [None]
  - HERNIA REPAIR [None]
  - HYPOTENSION [None]
  - INSOMNIA [None]
  - INTERVERTEBRAL DISC PROTRUSION [None]
  - LUMBAR SPINAL STENOSIS [None]
  - NEUROPATHY PERIPHERAL [None]
  - OEDEMA PERIPHERAL [None]
  - OSTEOARTHRITIS [None]
  - PAIN IN EXTREMITY [None]
  - PARAPLEGIA [None]
  - PULMONARY EMBOLISM [None]
  - RENAL FAILURE ACUTE [None]
  - SEPSIS [None]
  - SUICIDAL IDEATION [None]
  - URINARY TRACT INFECTION [None]
